FAERS Safety Report 22342153 (Version 1)
Quarter: 2023Q2

REPORT INFORMATION
  Report Type: Report from Study
  Country: BE (occurrence: BE)
  Receive Date: 20230519
  Receipt Date: 20230519
  Transmission Date: 20230722
  Serious: Yes (Hospitalization)
  Sender: FDA-Public Use
  Company Number: BE-ABBVIE-4717987

PATIENT
  Sex: Male
  Weight: 83 kg

DRUGS (35)
  1. CARBIDOPA\LEVODOPA [Suspect]
     Active Substance: CARBIDOPA\LEVODOPA
     Indication: Parkinson^s disease
     Route: 050
     Dates: start: 20171002
  2. CARBIDOPA\LEVODOPA [Suspect]
     Active Substance: CARBIDOPA\LEVODOPA
     Dosage: MD: 0.0 ML, ED: 2.4 ML, CND: 2.5 ML/H DURING 16 HOURS
     Route: 050
     Dates: start: 20230303
  3. CARBIDOPA\LEVODOPA [Suspect]
     Active Substance: CARBIDOPA\LEVODOPA
     Dosage: MD: 0.0 ML, CD: 3.6 ML/H, ED: 2.4 ML DURING 16 HOURS, CND: 3.0 ML/H, END: 2.4 ML
     Route: 050
     Dates: start: 20221108, end: 20221110
  4. CARBIDOPA\LEVODOPA [Suspect]
     Active Substance: CARBIDOPA\LEVODOPA
     Dosage: CD: 2.5 ML/H DURING 16 HOURS
     Route: 050
     Dates: start: 20221110, end: 20230303
  5. ASPIRIN [Concomitant]
     Active Substance: ASPIRIN
     Indication: Product used for unknown indication
     Dosage: STRENGTH-80
  6. Prolopa dispersible [Concomitant]
     Indication: Product used for unknown indication
  7. Prolopa dispersible [Concomitant]
     Indication: Product used for unknown indication
  8. Prolopa dispersible [Concomitant]
     Indication: Product used for unknown indication
  9. Prolopa dispersible [Concomitant]
     Indication: Product used for unknown indication
     Dosage: STRENGTH-125, 07.00, 11.30, 15.00, 16.30
  10. LEVOTHYROXINE [Concomitant]
     Active Substance: LEVOTHYROXINE
     Indication: Product used for unknown indication
     Route: 048
  11. LEVOTHYROXINE [Concomitant]
     Active Substance: LEVOTHYROXINE
     Indication: Product used for unknown indication
     Route: 048
  12. LEVOTHYROXINE [Concomitant]
     Active Substance: LEVOTHYROXINE
     Indication: Product used for unknown indication
     Route: 048
  13. LEVOTHYROXINE [Concomitant]
     Active Substance: LEVOTHYROXINE
     Indication: Product used for unknown indication
     Dosage: ONCE IN THE MORNING
     Route: 048
  14. FUROSEMIDE [Concomitant]
     Active Substance: FUROSEMIDE
     Indication: Product used for unknown indication
     Dosage: STRENGTH-40
  15. RITALIN [Concomitant]
     Active Substance: METHYLPHENIDATE HYDROCHLORIDE
     Indication: Product used for unknown indication
     Dosage: IN CASE OF SLEEP ATTACK UNDER ADVICE OF THE ATTENDING PHYSICIAN
  16. RITALIN [Concomitant]
     Active Substance: METHYLPHENIDATE HYDROCHLORIDE
     Indication: Product used for unknown indication
     Dosage: IN CASE OF SLEEP ATTACK UNDER ADVICE OF THE ATTENDING PHYSICIAN
  17. RITALIN [Concomitant]
     Active Substance: METHYLPHENIDATE HYDROCHLORIDE
     Indication: Product used for unknown indication
     Dosage: IN CASE OF SLEEP ATTACK UNDER ADVICE OF THE ATTENDING PHYSICIAN
  18. RITALIN [Concomitant]
     Active Substance: METHYLPHENIDATE HYDROCHLORIDE
     Indication: Product used for unknown indication
     Dosage: IN CASE OF SLEEP ATTACK UNDER ADVICE OF THE ATTENDING PHYSICIAN, 11.30, 17.30
  19. BENSERAZIDE\LEVODOPA [Concomitant]
     Active Substance: BENSERAZIDE\LEVODOPA
     Indication: Product used for unknown indication
  20. BENSERAZIDE\LEVODOPA [Concomitant]
     Active Substance: BENSERAZIDE\LEVODOPA
     Indication: Product used for unknown indication
  21. BENSERAZIDE\LEVODOPA [Concomitant]
     Active Substance: BENSERAZIDE\LEVODOPA
     Indication: Product used for unknown indication
  22. BENSERAZIDE\LEVODOPA [Concomitant]
     Active Substance: BENSERAZIDE\LEVODOPA
     Indication: Product used for unknown indication
     Dosage: STRENGTH-125
  23. MINERALS\VITAMINS [Concomitant]
     Active Substance: MINERALS\VITAMINS
     Indication: Product used for unknown indication
     Dosage: STRENGTH-84
  24. Daflon [Concomitant]
     Indication: Product used for unknown indication
     Dosage: TIME INTERVAL: 0.33333333 DAYS: STRENGTH-500
  25. Omic Ocas [Concomitant]
     Indication: Product used for unknown indication
     Dosage: 0.4 MG
  26. Neupro (patch) [Concomitant]
     Indication: Product used for unknown indication
  27. CYANOCOBALAMIN\FOLIC ACID\PYRIDOXINE HYDROCHLORIDE [Concomitant]
     Active Substance: CYANOCOBALAMIN\FOLIC ACID\PYRIDOXINE HYDROCHLORIDE
     Indication: Product used for unknown indication
     Dosage: STRENGTH-60
  28. AZILECT [Concomitant]
     Active Substance: RASAGILINE MESYLATE
     Indication: Product used for unknown indication
  29. CHOLECALCIFEROL [Concomitant]
     Active Substance: CHOLECALCIFEROL
     Indication: Product used for unknown indication
     Dosage: STRENGTH-100000IU VIAL
  30. STALEVO [Concomitant]
     Active Substance: CARBIDOPA\ENTACAPONE\LEVODOPA
     Indication: Product used for unknown indication
     Dosage: 07.30, 09.00, 10.00, 11.30, 13.00, 15.00, 17.00, 19.00
  31. STALEVO [Concomitant]
     Active Substance: CARBIDOPA\ENTACAPONE\LEVODOPA
     Indication: Product used for unknown indication
     Dosage: 07.30, 09.00, 10.00, 11.30, 13.00, 15.00, 17.00, 19.00
  32. STALEVO [Concomitant]
     Active Substance: CARBIDOPA\ENTACAPONE\LEVODOPA
     Indication: Product used for unknown indication
     Dosage: 07.30, 09.00, 10.00, 11.30, 13.00, 15.00, 17.00, 19.00
  33. STALEVO [Concomitant]
     Active Substance: CARBIDOPA\ENTACAPONE\LEVODOPA
     Indication: Product used for unknown indication
     Dosage: 07.30, 09.00, 10.00, 11.30, 13.00, 15.00, 17.00, 19.00?STRENGTH-50
  34. NITROLINGUAL [Concomitant]
     Active Substance: NITROGLYCERIN
     Indication: Product used for unknown indication
     Dosage: UP TO 3 TIMES A DAY IF NEEDED
  35. TOVIAZ [Concomitant]
     Active Substance: FESOTERODINE FUMARATE
     Indication: Product used for unknown indication
     Dosage: STRENGTH-8MG

REACTIONS (8)
  - Palliative care [Unknown]
  - Mobility decreased [Unknown]
  - Hypersomnia [Unknown]
  - Hypophagia [Unknown]
  - COVID-19 [Unknown]
  - Asthenia [Unknown]
  - Movement disorder [Unknown]
  - Condition aggravated [Not Recovered/Not Resolved]

NARRATIVE: CASE EVENT DATE: 20230101
